FAERS Safety Report 6475398-3 (Version None)
Quarter: 2009Q4

REPORT INFORMATION
  Report Type: 
  Country: None (occurrence: None)
  Receive Date: 20091204
  Receipt Date: 20081230
  Transmission Date: 20100525
  Serious: No
  Sender: FDA-Public Use
  Company Number: US-AMGEN-KDL326242

PATIENT
  Sex: Female

DRUGS (7)
  1. ENBREL [Suspect]
     Indication: ANKYLOSING SPONDYLITIS
     Route: 058
     Dates: start: 20080201
  2. ACIPHEX [Concomitant]
  3. ADVIL [Concomitant]
  4. ALBUTEROL [Concomitant]
  5. FLUTICASONE [Concomitant]
  6. VYTORIN [Concomitant]
  7. HYZAAR [Concomitant]

REACTIONS (2)
  - ANKYLOSING SPONDYLITIS [None]
  - FOOT FRACTURE [None]
